FAERS Safety Report 6649061-X (Version None)
Quarter: 2010Q1

REPORT INFORMATION
  Report Type: 
  Country: None (occurrence: None)
  Receive Date: 20100324
  Receipt Date: 20090709
  Transmission Date: 20100710
  Serious: Yes (Death, Hospitalization)
  Sender: FDA-Public Use
  Company Number: FR-SANOFI-AVENTIS-F01200900164

PATIENT
  Age: 60 Year
  Sex: Male
  Weight: 95 kg

DRUGS (11)
  1. OXALIPLATIN [Suspect]
     Indication: GASTRIC CANCER
     Dosage: UNIT DOSE: 200 MG
     Route: 042
     Dates: start: 20090209, end: 20090209
  2. OXALIPLATIN [Suspect]
     Route: 042
     Dates: start: 20090120, end: 20090120
  3. DOCETAXEL [Suspect]
     Indication: GASTRIC CANCER
     Dosage: UNIT DOSE: 100 MG
     Route: 042
     Dates: start: 20090209, end: 20090209
  4. DOCETAXEL [Suspect]
     Route: 042
     Dates: start: 20090120, end: 20090120
  5. CAPECITABINE [Suspect]
     Indication: GASTRIC CANCER
     Dosage: UNIT DOSE: 625 MG/M2
     Route: 048
     Dates: start: 20090120, end: 20090209
  6. ZYLORIC ^FAES^ [Concomitant]
     Dosage: UNIT DOSE: 100 MG
     Route: 048
  7. KARDEGIC /FRA/ [Concomitant]
     Dosage: UNIT DOSE: 75 MG
     Route: 048
     Dates: start: 20010101
  8. CRESTOR [Concomitant]
     Dosage: UNIT DOSE: 5 MG
     Route: 048
     Dates: start: 20010101
  9. OMACOR [Concomitant]
     Dosage: UNIT DOSE: 1 G
     Route: 048
     Dates: start: 20010101
  10. IRBESARTAN [Concomitant]
     Indication: HYPERTENSION
     Dosage: UNIT DOSE: 150 MG
     Route: 048
  11. LODOZ [Concomitant]
     Dosage: UNIT DOSE: 5 MG
     Route: 048
     Dates: start: 20010101

REACTIONS (1)
  - MYOCARDIAL INFARCTION [None]
